APPROVED DRUG PRODUCT: MORPHINE SULFATE
Active Ingredient: MORPHINE SULFATE
Strength: 15MG
Dosage Form/Route: TABLET;ORAL
Application: A215194 | Product #001 | TE Code: AB
Applicant: SPECGX LLC
Approved: Aug 21, 2023 | RLD: No | RS: No | Type: RX